FAERS Safety Report 18473038 (Version 1)
Quarter: 2020Q4

REPORT INFORMATION
  Report Type: Spontaneous
  Country: JP (occurrence: JP)
  Receive Date: 20201106
  Receipt Date: 20201106
  Transmission Date: 20210114
  Serious: Yes (Other)
  Sender: FDA-Public Use
  Company Number: NVSJ2020JP009159

PATIENT
  Age: 82 Year
  Sex: Female

DRUGS (2)
  1. EXELON PATCH [Suspect]
     Active Substance: RIVASTIGMINE
     Dosage: 9 MG, QD,PATCH5(CM2)
     Route: 062
     Dates: start: 20200807, end: 20200916
  2. EXELON PATCH [Suspect]
     Active Substance: RIVASTIGMINE
     Indication: DEMENTIA ALZHEIMER^S TYPE
     Dosage: 4.5 MG, QD,PATCH2.5(CM2)
     Route: 062
     Dates: start: 20200618, end: 20200806

REACTIONS (3)
  - Condition aggravated [Unknown]
  - Parkinsonism [Not Recovered/Not Resolved]
  - Dementia Alzheimer^s type [Unknown]

NARRATIVE: CASE EVENT DATE: 20200916
